FAERS Safety Report 25676146 (Version 1)
Quarter: 2025Q3

REPORT INFORMATION
  Report Type: Report from Study
  Country: US (occurrence: US)
  Receive Date: 20250813
  Receipt Date: 20250813
  Transmission Date: 20251021
  Serious: No
  Sender: SUNOVION
  Company Number: US-SMPA-2025SPA010128

PATIENT
  Age: 70 Year
  Sex: Male

DRUGS (10)
  1. ORGOVYX [Suspect]
     Active Substance: RELUGOLIX
     Indication: Prostate cancer
     Route: 048
  2. ORGOVYX [Suspect]
     Active Substance: RELUGOLIX
     Route: 048
  3. ALFUZOSIN [Concomitant]
     Active Substance: ALFUZOSIN
  4. GLIMEPIRIDE [Concomitant]
     Active Substance: GLIMEPIRIDE
  5. LOSARTAN [Concomitant]
     Active Substance: LOSARTAN
  6. MOUNJARO [Concomitant]
     Active Substance: TIRZEPATIDE
  7. PIOGLITAZONE [Concomitant]
     Active Substance: PIOGLITAZONE
  8. PRAVASTATIN [Concomitant]
     Active Substance: PRAVASTATIN
  9. PREDNISONE [Concomitant]
     Active Substance: PREDNISONE
  10. TAMSULOSIN [Concomitant]
     Active Substance: TAMSULOSIN

REACTIONS (1)
  - Hot flush [Unknown]
